FAERS Safety Report 4340154-9 (Version None)
Quarter: 2004Q2

REPORT INFORMATION
  Report Type: 
  Country: None (occurrence: None)
  Receive Date: 20040416
  Receipt Date: 20040416
  Transmission Date: 20050107
  Serious: Yes (Death)
  Sender: FDA-Public Use
  Company Number: None

PATIENT
  Age: 73 Year
  Sex: Female
  Weight: 47.7 kg

DRUGS (9)
  1. DOCETAXEL [Suspect]
     Indication: BLADDER CANCER
     Dosage: 55 MG, D1,8,15 IV
     Route: 042
     Dates: start: 20040126, end: 20040308
  2. CAPECITABINE [Suspect]
     Indication: BLADDER CANCER
     Dosage: 1250 MG/M2 D5-18, PO
     Route: 048
     Dates: start: 20040130, end: 20040308
  3. MONOPRIL [Concomitant]
  4. NORVASC [Concomitant]
  5. ATENOLOL [Concomitant]
  6. CATAPRES [Concomitant]
  7. ZOCOR [Concomitant]
  8. VALIUM [Concomitant]
  9. ACIPHEX [Concomitant]

REACTIONS (9)
  - ABDOMINAL TENDERNESS [None]
  - CANDIDIASIS [None]
  - DYSPHAGIA [None]
  - FATIGUE [None]
  - HAEMOPTYSIS [None]
  - MALIGNANT NEOPLASM PROGRESSION [None]
  - METASTASES TO LUNG [None]
  - SPINAL DISORDER [None]
  - TENDERNESS [None]
